FAERS Safety Report 4329157-8 (Version None)
Quarter: 2004Q1

REPORT INFORMATION
  Report Type: 
  Country: None (occurrence: None)
  Receive Date: 20040329
  Receipt Date: 20031223
  Transmission Date: 20041129
  Serious: No
  Sender: FDA-Public Use
  Company Number: 03P-163-0245564-00

PATIENT
  Age: 48 Year
  Sex: Female

DRUGS (5)
  1. HUMIRA [Suspect]
     Indication: RHEUMATOID ARTHRITIS
     Dosage: 40 MG, 1 IN 2 WK, SUBCUTANEOUS
     Route: 058
     Dates: start: 20030902
  2. CYCLOBENZAPRINE HYDROCHLORIDE [Concomitant]
  3. ULTRACET [Concomitant]
  4. CELECOXIB [Concomitant]
  5. LEXAPRO [Concomitant]

REACTIONS (1)
  - OEDEMA PERIPHERAL [None]
